FAERS Safety Report 9130028 (Version 5)
Quarter: 2013Q2

REPORT INFORMATION
  Report Type: Spontaneous
  Country: JP (occurrence: JP)
  Receive Date: 20130228
  Receipt Date: 20130604
  Transmission Date: 20140414
  Serious: Yes (Death, Life-Threatening, Other)
  Sender: FDA-Public Use
  Company Number: JP-PFIZER INC-2013068114

PATIENT
  Age: 53 Year
  Sex: Female

DRUGS (8)
  1. MIGLITOL [Suspect]
     Indication: TYPE 2 DIABETES MELLITUS
     Dosage: 50 MG, 3X/DAY
     Route: 048
     Dates: end: 20130213
  2. NESINA [Concomitant]
     Dosage: UNK
     Dates: end: 20130213
  3. GLIMEPIRIDE [Concomitant]
     Dosage: UNK
     Dates: end: 20130213
  4. CRESTOR [Concomitant]
     Dosage: UNK
     Dates: end: 20130213
  5. AMLODIN [Concomitant]
     Dosage: UNK
     Dates: end: 20130213
  6. DILTIAZEM [Concomitant]
     Dosage: UNK
     Dates: end: 20130213
  7. FAMOTIDINE [Concomitant]
     Dosage: UNK
     Dates: end: 20130213
  8. METFORMIN HYDROCHLORIDE [Concomitant]
     Dosage: UNK
     Dates: end: 20130213

REACTIONS (1)
  - Hepatitis fulminant [Fatal]
